FAERS Safety Report 8307728 (Version 2)
Quarter: 2016Q2

REPORT INFORMATION
  Report Type: Spontaneous
  Country: GB (occurrence: GB)
  Receive Date: 20111222
  Receipt Date: 20160627
  Transmission Date: 20160815
  Serious: Yes (Hospitalization, Other)
  Sender: FDA-Public Use
  Company Number: GB-TEVA-314027ISR

PATIENT
  Age: 32 Year
  Sex: Male
  Weight: 61 kg

DRUGS (16)
  1. EPILIM [Suspect]
     Active Substance: VALPROATE SODIUM
     Dosage: 600 MILLIGRAM DAILY;
     Route: 042
     Dates: start: 20111031, end: 20111103
  2. PABRINEX [Concomitant]
  3. VANCOMYCIN [Suspect]
     Active Substance: VANCOMYCIN
     Dosage: 2000 MILLIGRAM DAILY;
     Route: 042
     Dates: start: 201111, end: 20111107
  4. OMEPRAZOLE. [Concomitant]
     Active Substance: OMEPRAZOLE
  5. MAGNESIUM [Concomitant]
     Active Substance: MAGNESIUM
  6. PRONTODERM [Concomitant]
  7. PROPOFOL. [Concomitant]
     Active Substance: PROPOFOL
  8. MIDAZOLAM [Concomitant]
     Active Substance: MIDAZOLAM\MIDAZOLAM HYDROCHLORIDE
  9. SENNA [Concomitant]
     Active Substance: SENNA LEAF\SENNOSIDES\SENNOSIDES A AND B
  10. DOCUSATE [Concomitant]
     Active Substance: DOCUSATE
  11. METOCLOPRAMIDE. [Concomitant]
     Active Substance: METOCLOPRAMIDE
  12. MAGNESIUM SULPHATE [Concomitant]
     Active Substance: MAGNESIUM SULFATE
  13. KEPPRA [Suspect]
     Active Substance: LEVETIRACETAM
     Indication: SEIZURE
     Dosage: 500 MILLIGRAM DAILY; ROUTE: ENTERAL
     Dates: start: 20111103, end: 20111103
  14. CHLORHEXIDINE [Concomitant]
     Active Substance: CHLORHEXIDINE
  15. ALFENTANIL. [Concomitant]
     Active Substance: ALFENTANIL
  16. FUROSEMIDE. [Concomitant]
     Active Substance: FUROSEMIDE

REACTIONS (9)
  - Renal impairment [Recovering/Resolving]
  - Hepatitis [Recovering/Resolving]
  - Drug reaction with eosinophilia and systemic symptoms [Recovering/Resolving]
  - Eosinophilia [Unknown]
  - Neutropenia [Unknown]
  - Tubulointerstitial nephritis [Recovering/Resolving]
  - Transaminases increased [Unknown]
  - Rash erythematous [Recovered/Resolved]
  - Neutrophilia [Unknown]

NARRATIVE: CASE EVENT DATE: 201111
